FAERS Safety Report 9551962 (Version 1)
Quarter: 2013Q3

REPORT INFORMATION
  Report Type: Spontaneous
  Country: US (occurrence: None)
  Receive Date: 20130923
  Receipt Date: 20130923
  Transmission Date: 20140515
  Serious: Yes (Hospitalization)
  Sender: FDA-Public Use
  Company Number: None

PATIENT
  Age: 56 Year
  Sex: Male
  Weight: 118 kg

DRUGS (1)
  1. VICTOZA [Suspect]
     Indication: TYPE 2 DIABETES MELLITUS
     Dosage: 1.8 MG/0.3 ML, QD, SUBCUTANEOUS?
     Route: 058
     Dates: start: 20121114, end: 20130917

REACTIONS (2)
  - Decreased appetite [None]
  - Abdominal pain upper [None]
